FAERS Safety Report 6431704-7 (Version None)
Quarter: 2009Q4

REPORT INFORMATION
  Report Type: 
  Country: None (occurrence: None)
  Receive Date: 20091103
  Receipt Date: 20091019
  Transmission Date: 20100525
  Serious: Yes (Hospitalization)
  Sender: FDA-Public Use
  Company Number: 02100-JPN-05-0163

PATIENT
  Age: 79 Year
  Sex: Female
  Weight: 40 kg

DRUGS (22)
  1. ASPIRIN [Suspect]
     Indication: CEREBRAL INFARCTION
     Dosage: 81 MG, QD
     Route: 048
     Dates: start: 20040930, end: 20070129
  2. SERMION (NICERGOLINE) TABLET [Concomitant]
  3. FAMOTIDINE [Concomitant]
  4. BIO THREE (BACTERIA NOS) POWDER FOR ORAL SOLUTION [Concomitant]
  5. POLLAKISU (OXYBUTYNIN HYDROCHLORIDE) TABLET [Concomitant]
  6. ALPRAZOLAM [Concomitant]
  7. LORAZEPAM [Concomitant]
  8. OLMETEC (OLMESARTAN MEDOXOMIL) TABLET [Concomitant]
  9. MS (CATAPLASMATA 3-14) TAPE (INCLUDING POULTICE) [Concomitant]
  10. ALLOPURINOL [Concomitant]
  11. CALBLOCK (AZELNIDIPINE) TABLET [Concomitant]
  12. SENNOSIDE (SENNOSIDE) TABLET [Concomitant]
  13. TAMIFLU (OSELTAMIVIR PHOSPHATE) CAPSULE [Concomitant]
  14. ST3A (UNSPECIFIED DRUG) [Concomitant]
  15. PL (NON-PYRINE PREPARATION FOR COLD SYNDROME) [Concomitant]
  16. ZYRTEC [Concomitant]
  17. BANAN [Concomitant]
  18. LASIX (FUROSERMIDE) TABLET [Concomitant]
  19. MICARDIS [Concomitant]
  20. NORVASC [Concomitant]
  21. SYMMETREL [Concomitant]
  22. PLETAL [Suspect]

REACTIONS (10)
  - ANAEMIA [None]
  - BLOOD UREA INCREASED [None]
  - DISUSE SYNDROME [None]
  - DUODENAL ULCER HAEMORRHAGE [None]
  - FALL [None]
  - GAIT DISTURBANCE [None]
  - INFLUENZA [None]
  - MUSCLE ATROPHY [None]
  - NASOPHARYNGITIS [None]
  - PNEUMONIA [None]
